FAERS Safety Report 4597218-4 (Version None)
Quarter: 2005Q1

REPORT INFORMATION
  Report Type: 
  Country: None (occurrence: None)
  Receive Date: 20050303
  Receipt Date: 20050222
  Transmission Date: 20050727
  Serious: Yes (Life-Threatening, Hospitalization, Disabling, Other)
  Sender: FDA-Public Use
  Company Number: CA-JNJFOC-20040205217

PATIENT
  Sex: Female
  Weight: 68 kg

DRUGS (7)
  1. REMICADE [Suspect]
     Indication: RHEUMATOID ARTHRITIS
     Dosage: 3 MG/KG
     Route: 042
  2. PREDNISONE [Concomitant]
  3. NAPROXEN [Concomitant]
  4. METHOTREXATE [Concomitant]
  5. MEDICATION FOR BONES [Concomitant]
  6. VITAMINS [Concomitant]
  7. TYLENOL (CAPLET) [Concomitant]

REACTIONS (7)
  - CARDIAC DISORDER [None]
  - EYE PAIN [None]
  - HEADACHE [None]
  - MYOCARDIAL INFARCTION [None]
  - RESPIRATORY FAILURE [None]
  - TUBERCULOSIS [None]
  - VISUAL DISTURBANCE [None]
